FAERS Safety Report 6985191-0 (Version None)
Quarter: 2010Q3

REPORT INFORMATION
  Report Type: 
  Country: None (occurrence: None)
  Receive Date: 20100915
  Receipt Date: 20100907
  Transmission Date: 20110219
  Serious: Yes (Other)
  Sender: FDA-Public Use
  Company Number: US-ROCHE-726044

PATIENT
  Sex: Female

DRUGS (4)
  1. PEGASYS [Suspect]
     Indication: HEPATITIS C
     Dosage: FORM: PFS
     Route: 058
     Dates: start: 20040127
  2. PEGASYS [Suspect]
     Dosage: FORM: PFS
     Route: 058
     Dates: start: 20060501
  3. RIBAVIRIN [Suspect]
     Indication: HEPATITIS C
     Dosage: DIVIDED DOSES
     Route: 048
     Dates: start: 20040127
  4. RIBAVIRIN [Suspect]
     Dosage: DAILY DIVIDED DOSES
     Route: 048
     Dates: start: 20060501

REACTIONS (3)
  - DEPRESSIVE SYMPTOM [None]
  - TARDIVE DYSKINESIA [None]
  - VASCULAR OCCLUSION [None]
